FAERS Safety Report 18734984 (Version 1)
Quarter: 2021Q1

REPORT INFORMATION
  Report Type: Spontaneous
  Country: US (occurrence: US)
  Receive Date: 20210113
  Receipt Date: 20210113
  Transmission Date: 20210419
  Serious: Yes (Hospitalization, Other)
  Sender: FDA-Public Use
  Company Number: US-MACLEODS PHARMACEUTICALS US LTD-MAC2021029740

PATIENT

DRUGS (3)
  1. BENZTROPINE. [Concomitant]
     Active Substance: BENZTROPINE
     Indication: DYSKINESIA
     Dosage: 1 MILLIGRAM
     Route: 065
  2. OLANZAPINE. [Suspect]
     Active Substance: OLANZAPINE
     Dosage: 20 MILLIGRAM, QD (NIGHTLY)
     Route: 065
  3. OLANZAPINE. [Suspect]
     Active Substance: OLANZAPINE
     Indication: PRODUCT USED FOR UNKNOWN INDICATION
     Dosage: 40 MILLIGRAM, Q.W. (WAS ONLY TAKING IT TWICE PER WEEK, RATHER THAN NIGHTLY AS PRESCRIBED)
     Route: 065

REACTIONS (9)
  - Sedation complication [Unknown]
  - Circadian rhythm sleep disorder [Unknown]
  - Hallucination, visual [Unknown]
  - Generalised anxiety disorder [Unknown]
  - Loss of personal independence in daily activities [Unknown]
  - Psychotic disorder [Unknown]
  - Insomnia [Unknown]
  - Treatment noncompliance [Unknown]
  - Suicide attempt [Unknown]
